FAERS Safety Report 7261020-5 (Version None)
Quarter: 2011Q1

REPORT INFORMATION
  Report Type: 
  Country: None (occurrence: None)
  Receive Date: 20110130
  Receipt Date: 20101123
  Transmission Date: 20110831
  Serious: Yes (Hospitalization)
  Sender: FDA-Public Use
  Company Number: US-ABBOTT-10P-163-0687510-00

PATIENT
  Sex: Male
  Weight: 65.83 kg

DRUGS (5)
  1. VITAMIN B-12 [Concomitant]
     Indication: ANAEMIA
  2. HUMIRA [Suspect]
     Dates: start: 20101109
  3. MERCAPTOPURINE [Concomitant]
     Indication: CROHN'S DISEASE
     Dates: start: 20100701
  4. HUMIRA [Suspect]
     Indication: CROHN'S DISEASE
     Dates: start: 20080101, end: 20101108
  5. UNKNOWN ANTICOAGULANT [Concomitant]
     Indication: THROMBOSIS PROPHYLAXIS
     Route: 050
     Dates: start: 20101001, end: 20101001

REACTIONS (1)
  - CROHN'S DISEASE [None]
